FAERS Safety Report 4962386-9 (Version None)
Quarter: 2006Q2

REPORT INFORMATION
  Report Type: 
  Country: None (occurrence: None)
  Receive Date: 20060403
  Receipt Date: 20060403
  Transmission Date: 20061013
  Serious: Yes (Other)
  Sender: FDA-Public Use
  Company Number: None

PATIENT
  Sex: Female
  Weight: 63.5036 kg

DRUGS (6)
  1. SULINDAC [Suspect]
     Indication: OSTEOARTHRITIS
     Dosage: 200 MG BID PO
     Route: 048
     Dates: start: 20060329, end: 20060331
  2. HYDROCOD/APAP [Concomitant]
  3. LYRICA [Concomitant]
  4. OMEPRAZOLE [Concomitant]
  5. METHLPRED [Concomitant]
  6. CAYNOCABALAM [Concomitant]

REACTIONS (3)
  - CONTUSION [None]
  - HYPOAESTHESIA [None]
  - SKIN DISCOLOURATION [None]
